FAERS Safety Report 9022379 (Version 2)
Quarter: 2013Q1

REPORT INFORMATION
  Report Type: Spontaneous
  Country: IT (occurrence: IT)
  Receive Date: 20130118
  Receipt Date: 20130311
  Transmission Date: 20140127
  Serious: Yes (Other)
  Sender: FDA-Public Use
  Company Number: IT-NOVOPROD-368508

PATIENT
  Age: 75 Year
  Sex: Female

DRUGS (3)
  1. LEVEMIR FLEXPEN [Suspect]
     Indication: DIABETES MELLITUS
     Dosage: 8 U, QD
     Route: 065
     Dates: start: 20120101
  2. NOVORAPID FLEXPEN [Suspect]
     Indication: DIABETES MELLITUS
     Dosage: 19 U, QD
     Route: 065
     Dates: start: 20120101
  3. COUMADIN                           /00014802/ [Concomitant]

REACTIONS (2)
  - Hyperhidrosis [Unknown]
  - Hypoglycaemia [Unknown]
